FAERS Safety Report 6804158-6 (Version None)
Quarter: 2010Q2

REPORT INFORMATION
  Report Type: 
  Country: None (occurrence: None)
  Receive Date: 20100628
  Receipt Date: 20071116
  Transmission Date: 20101027
  Serious: No
  Sender: FDA-Public Use
  Company Number: US-PFIZER INC-2006035987

PATIENT
  Sex: Male
  Weight: 97.52 kg

DRUGS (4)
  1. XALATAN [Suspect]
     Indication: GLAUCOMA
     Route: 047
     Dates: start: 19970404
  2. TIMOPTIC [Concomitant]
     Route: 047
  3. DIPIVEFRINE [Concomitant]
     Route: 047
  4. BRIMONIDINE [Concomitant]
     Route: 047

REACTIONS (2)
  - INCORRECT DOSE ADMINISTERED [None]
  - VISUAL ACUITY REDUCED [None]
